FAERS Safety Report 8230743-3 (Version None)
Quarter: 2012Q1

REPORT INFORMATION
  Report Type: 
  Country: None (occurrence: None)
  Receive Date: 20120323
  Receipt Date: 20120320
  Transmission Date: 20120608
  Serious: Yes (Hospitalization, Other)
  Sender: FDA-Public Use
  Company Number: US-SANOFI-AVENTIS-2012SA019509

PATIENT
  Age: 83 Year
  Sex: Female

DRUGS (4)
  1. APIDRA [Suspect]
     Dosage: PER SLIDING SCALE
     Route: 058
  2. COUMADIN [Concomitant]
  3. SOLOSTAR [Suspect]
  4. INSULIN [Concomitant]

REACTIONS (7)
  - PRODUCT QUALITY ISSUE [None]
  - BLOOD GLUCOSE DECREASED [None]
  - CONFUSIONAL STATE [None]
  - HAEMORRHAGE [None]
  - HYPOGLYCAEMIC UNCONSCIOUSNESS [None]
  - BLOOD GLUCOSE FLUCTUATION [None]
  - FALL [None]
